FAERS Safety Report 10065896 (Version 1)
Quarter: 2014Q1

REPORT INFORMATION
  Report Type: Spontaneous
  Country: US (occurrence: None)
  Receive Date: 20140328
  Receipt Date: 20140328
  Transmission Date: 20141002
  Serious: No
  Sender: FDA-Public Use
  Company Number: 1000054153

PATIENT
  Age: 91 Year
  Sex: Male

DRUGS (2)
  1. LINZESS [Suspect]
     Indication: CONSTIPATION
     Route: 048
     Dates: start: 201401
  2. MILK OF MAGNESIA (MAGNESIUM HYDROXIDE) [Concomitant]
     Indication: CONSTIPATION

REACTIONS (2)
  - Diarrhoea [None]
  - Drug ineffective [None]
